FAERS Safety Report 20882358 (Version 11)
Quarter: 2023Q1

REPORT INFORMATION
  Report Type: Report from Study
  Country: US (occurrence: None)
  Receive Date: 20220527
  Receipt Date: 20230223
  Transmission Date: 20230417
  Serious: Yes (Other)
  Sender: FDA-Public Use
  Company Number: US-ROCHE-3101630

PATIENT
  Age: 68 Year
  Sex: Male
  Weight: 97 kg

DRUGS (33)
  1. RANIBIZUMAB [Suspect]
     Active Substance: RANIBIZUMAB
     Indication: Diabetic retinal oedema
     Dosage: ^FREQUENCY OF REFILL OF THE IMPLANT: ONCE IN 24 WEEKS, 100 MG/ML?START DATE OF MOST RECENT DOSE OF S
     Route: 050
     Dates: start: 20200709
  2. RANIBIZUMAB [Suspect]
     Active Substance: RANIBIZUMAB
  3. RANIBIZUMAB [Suspect]
     Active Substance: RANIBIZUMAB
  4. RANIBIZUMAB [Suspect]
     Active Substance: RANIBIZUMAB
  5. RANIBIZUMAB [Suspect]
     Active Substance: RANIBIZUMAB
  6. RANIBIZUMAB [Concomitant]
     Active Substance: RANIBIZUMAB
     Indication: Diabetic retinal oedema
     Dosage: START DATE OF MOST RECENT DOSE OF STUDY DRUG PRIOR TO SAE ON 13/APR/2022 ^FELLOW EYE TREATMENT^. DOS
     Route: 050
     Dates: start: 20201217
  7. RANIBIZUMAB [Concomitant]
     Active Substance: RANIBIZUMAB
     Dosage: 10 MG/ML
     Route: 050
     Dates: start: 20221216, end: 20221216
  8. RANIBIZUMAB [Concomitant]
     Active Substance: RANIBIZUMAB
     Dosage: 10 MG/ML
     Route: 050
     Dates: start: 20230214, end: 20230214
  9. BASAGLAR [Concomitant]
     Active Substance: INSULIN GLARGINE
     Indication: Type 2 diabetes mellitus
     Dosage: DOSE: 55 U
     Route: 058
     Dates: start: 2017
  10. LISINOPRIL [Concomitant]
     Active Substance: LISINOPRIL
     Indication: Hypertension
     Dosage: 20 MG/ML
     Route: 048
     Dates: start: 2010, end: 20221130
  11. LISINOPRIL [Concomitant]
     Active Substance: LISINOPRIL
     Dosage: 40 MG/ML
     Route: 048
     Dates: start: 20221130
  12. JANUVIA [Concomitant]
     Active Substance: SITAGLIPTIN PHOSPHATE
     Indication: Type 2 diabetes mellitus
     Dosage: 100 MG/ML
     Route: 048
     Dates: start: 202001
  13. CIALIS [Concomitant]
     Active Substance: TADALAFIL
     Indication: Erectile dysfunction
     Dosage: 10 MG/ML
     Route: 048
     Dates: start: 2010
  14. VITAMIN D3 [Concomitant]
     Active Substance: CHOLECALCIFEROL
     Indication: Vitamin D deficiency
     Route: 048
     Dates: start: 202006
  15. ASPIRIN [Concomitant]
     Active Substance: ASPIRIN
     Dosage: 81 MG/ML
     Route: 048
     Dates: start: 20201104
  16. GLIPIZIDE [Concomitant]
     Active Substance: GLIPIZIDE
     Indication: Type 2 diabetes mellitus
     Dosage: DOSE: 1 TABLET
     Route: 048
     Dates: start: 20210202
  17. ALEVE [Concomitant]
     Active Substance: NAPROXEN SODIUM
     Indication: Back pain
     Dosage: 220 MG/ML
     Route: 048
     Dates: start: 20210221
  18. BUSPIRONE [Concomitant]
     Active Substance: BUSPIRONE HYDROCHLORIDE
     Indication: Anxiety
     Dosage: 7.5 MG/ML
     Route: 048
     Dates: start: 20211214
  19. HYDROCHLOROTHIAZIDE [Concomitant]
     Active Substance: HYDROCHLOROTHIAZIDE
     Indication: Hypertension
     Dosage: 50 MG/ML
     Route: 048
     Dates: start: 20211214, end: 20221130
  20. HYDROCHLOROTHIAZIDE [Concomitant]
     Active Substance: HYDROCHLOROTHIAZIDE
     Route: 048
     Dates: start: 20220111, end: 20221130
  21. ATORVASTATIN [Concomitant]
     Active Substance: ATORVASTATIN
     Indication: Hyperlipidaemia
     Dosage: 20 MG/ML
     Route: 048
     Dates: start: 20211018
  22. HYDROXYZINE HYDROCHLORIDE [Concomitant]
     Active Substance: HYDROXYZINE HYDROCHLORIDE
     Indication: Anxiety
     Dosage: DOSE: 10 MG/ML
     Route: 048
     Dates: start: 20211214
  23. JARDIANCE [Concomitant]
     Active Substance: EMPAGLIFLOZIN
     Indication: Type 2 diabetes mellitus
     Dosage: 25 MG/ML
     Route: 048
     Dates: start: 20191021
  24. BISOPROLOL [Concomitant]
     Active Substance: BISOPROLOL
     Indication: Hypertension
     Dosage: 5 MG/ML
     Route: 048
     Dates: start: 20220111, end: 20221130
  25. HYDROCHLOROTHIAZIDE [Concomitant]
     Active Substance: HYDROCHLOROTHIAZIDE
     Indication: Hypertension
     Dosage: 6.25 MG/ML
     Route: 048
     Dates: start: 20220111, end: 20221130
  26. POLYMYXIN [Concomitant]
     Active Substance: POLYMYXIN
     Route: 047
     Dates: start: 20220426
  27. PREDNISOLONE ACETATE [Concomitant]
     Active Substance: PREDNISOLONE ACETATE
     Route: 047
     Dates: start: 20220426, end: 20220610
  28. BETAMETHASONE [Concomitant]
     Active Substance: BETAMETHASONE
     Indication: Greater trochanteric pain syndrome
     Dosage: DOSE: 2 MG/ML
     Route: 030
     Dates: start: 20220517, end: 20220517
  29. LIDOCAINE [Concomitant]
     Active Substance: LIDOCAINE
     Indication: Greater trochanteric pain syndrome
     Dosage: DOSE: 2MG/ML
     Route: 030
     Dates: start: 20220517, end: 20220517
  30. MARCAINE [Concomitant]
     Active Substance: BUPIVACAINE HYDROCHLORIDE
     Indication: Greater trochanteric pain syndrome
     Dosage: DOSE: 2MG/ML
     Route: 030
     Dates: start: 20220517, end: 20220517
  31. ANTIMICROBIALS (UNK INGREDIENTS) [Concomitant]
  32. TAMSULOSIN [Concomitant]
     Active Substance: TAMSULOSIN
     Indication: Nephrolithiasis
     Dosage: 0.4 MG/ML
     Route: 048
     Dates: start: 20221027
  33. NOVOLOG [Concomitant]
     Active Substance: INSULIN ASPART
     Indication: Diabetes mellitus
     Route: 030
     Dates: start: 20221130

REACTIONS (2)
  - Device issue [Unknown]
  - No adverse event [Unknown]

NARRATIVE: CASE EVENT DATE: 20220518
